FAERS Safety Report 17119117 (Version 2)
Quarter: 2020Q2

REPORT INFORMATION
  Report Type: Spontaneous
  Country: US (occurrence: US)
  Receive Date: 20191206
  Receipt Date: 20200601
  Transmission Date: 20200713
  Serious: Yes (Other)
  Sender: FDA-Public Use
  Company Number: US-UCBSA-2017032210

PATIENT
  Age: 44 Year
  Sex: Male

DRUGS (1)
  1. CIMZIA [Suspect]
     Active Substance: CERTOLIZUMAB PEGOL
     Indication: PRODUCT USED FOR UNKNOWN INDICATION
     Dosage: 2X200 MG/ML

REACTIONS (8)
  - Abdominal pain [Unknown]
  - Paraesthesia [Unknown]
  - Hypertension [Unknown]
  - Cardiac failure [Unknown]
  - Asthenia [Unknown]
  - Hypoaesthesia [Unknown]
  - Diarrhoea [Unknown]
  - Fatigue [Unknown]

NARRATIVE: CASE EVENT DATE: 20170814
